FAERS Safety Report 18817201 (Version 1)
Quarter: 2021Q1

REPORT INFORMATION
  Report Type: Spontaneous
  Country: None (occurrence: US)
  Receive Date: 20210201
  Receipt Date: 20210201
  Transmission Date: 20210419
  Serious: No
  Sender: FDA-Public Use
  Company Number: US-SERB S.A.S.-2106109

PATIENT
  Age: 38 Year
  Sex: Male

DRUGS (2)
  1. CYANOKIT [Suspect]
     Active Substance: HYDROXOCOBALAMIN
     Indication: VASOPLEGIA SYNDROME
  2. METHYLENE BLUE. [Suspect]
     Active Substance: METHYLENE BLUE

REACTIONS (2)
  - Product use in unapproved indication [Recovered/Resolved]
  - Chromaturia [Recovered/Resolved]
